FAERS Safety Report 5642021-7 (Version None)
Quarter: 2008Q1

REPORT INFORMATION
  Report Type: 
  Country: None (occurrence: None)
  Receive Date: 20080225
  Receipt Date: 20080128
  Transmission Date: 20080703
  Serious: No
  Sender: FDA-Public Use
  Company Number: 001#2@2008-00074

PATIENT
  Age: 70 Year
  Sex: Male

DRUGS (5)
  1. NEUPRO [Suspect]
     Dosage: 6 MG/24H (6 MG/24H 1 IN 1 DAY(S)) TRANSDERMAL
     Route: 062
     Dates: start: 20070101
  2. MADOPAR (BENSERAZIDE HYDROCHLORIDE, LEVODOPA) [Concomitant]
  3. LEVODOPA-CARBIDOPA (CARBIDOPA, LEVODOPA) [Concomitant]
  4. ENTACAPONE (ENTACAPONE) [Concomitant]
  5. SOTALOL HCL [Concomitant]

REACTIONS (4)
  - APPLICATION SITE ERYTHEMA [None]
  - APPLICATION SITE EXFOLIATION [None]
  - APPLICATION SITE PRURITUS [None]
  - INCORRECT DRUG ADMINISTRATION DURATION [None]
